FAERS Safety Report 14304567 (Version 1)
Quarter: 2017Q4

REPORT INFORMATION
  Report Type: Report from Study
  Country: JP (occurrence: JP)
  Receive Date: 20171219
  Receipt Date: 20171219
  Transmission Date: 20180321
  Serious: Yes (Hospitalization, Other)
  Sender: FDA-Public Use
  Company Number: JP-OTSUKA-03100-JPN-08-0006

PATIENT

DRUGS (13)
  1. AKINETON [Concomitant]
     Active Substance: BIPERIDEN HYDROCHLORIDE
     Indication: PSYCHOTHERAPY
     Dosage: 3 MG, QD
     Route: 048
     Dates: start: 20070516
  2. GLUFAST [Concomitant]
     Active Substance: MITIGLINIDE
     Dosage: 30 MG, QD
     Route: 048
     Dates: start: 20080307, end: 20080327
  3. ROHYPNOL [Concomitant]
     Active Substance: FLUNITRAZEPAM
     Indication: INSOMNIA
     Dosage: 2 MG, QD
     Route: 048
     Dates: start: 20070306
  4. BASEN [Concomitant]
     Active Substance: VOGLIBOSE
     Dosage: 0.6 MG, QD
     Route: 048
     Dates: start: 20080307
  5. GLYCORAN [Concomitant]
     Active Substance: GLYCERIN
     Dosage: 500 MG, QD
     Route: 048
     Dates: start: 20080327
  6. ARIPIPRAZOLE. [Suspect]
     Active Substance: ARIPIPRAZOLE
     Indication: SCHIZOPHRENIA
     Dosage: 6 MG, BID
     Route: 048
     Dates: start: 20070614, end: 20070704
  7. ARIPIPRAZOLE. [Suspect]
     Active Substance: ARIPIPRAZOLE
     Dosage: 12 MG, BID
     Route: 048
     Dates: start: 20070705
  8. RISPERIDONE. [Concomitant]
     Active Substance: RISPERIDONE
     Indication: SCHIZOPHRENIA
     Dosage: 6 MG, UNK
     Route: 048
     Dates: start: 20070306
  9. RISPERDAL [Concomitant]
     Active Substance: RISPERIDONE
     Indication: SCHIZOPHRENIA
     Dosage: 6 MG, QD
     Route: 048
     Dates: start: 20070306
  10. FLUNITRAZEPAM [Concomitant]
     Active Substance: FLUNITRAZEPAM
     Indication: INSOMNIA
     Dosage: TABLET.
     Route: 048
     Dates: start: 20070306
  11. GLIMEPIRIDE. [Concomitant]
     Active Substance: GLIMEPIRIDE
     Dosage: 4 MG, UNK
     Route: 048
     Dates: start: 20070320, end: 20080306
  12. AMARYL [Concomitant]
     Active Substance: GLIMEPIRIDE
     Dosage: 4 MG, QD
     Route: 048
     Dates: start: 20070320, end: 20080306
  13. METFORMIN [Concomitant]
     Active Substance: METFORMIN HYDROCHLORIDE
     Dosage: UNK
     Dates: start: 20080327

REACTIONS (1)
  - Blood glucose increased [Not Recovered/Not Resolved]

NARRATIVE: CASE EVENT DATE: 20070802
